FAERS Safety Report 6895395-3 (Version None)
Quarter: 2010Q3

REPORT INFORMATION
  Report Type: 
  Country: None (occurrence: None)
  Receive Date: 20100802
  Receipt Date: 20100722
  Transmission Date: 20110219
  Serious: Yes (Other)
  Sender: FDA-Public Use
  Company Number: JP-PFIZER INC-2010076631

PATIENT
  Age: 77 Year
  Sex: Male

DRUGS (9)
  1. SULPERAZON [Suspect]
     Indication: INFECTION
     Dosage: 1 G, 2X/DAY
     Route: 042
     Dates: start: 20100603, end: 20100605
  2. MINIPRESS [Suspect]
     Indication: HYPERTENSION
     Dosage: UNK
     Route: 048
  3. NU LOTAN [Suspect]
     Indication: HYPERTENSION
     Dosage: UNK
     Route: 048
     Dates: start: 20051110
  4. PERSANTINE [Suspect]
     Dosage: 150 MG, 2X/DAY
     Route: 048
     Dates: start: 20030315
  5. HARNAL [Suspect]
     Dosage: 0.2 MG, 1X/DAY
     Route: 048
     Dates: start: 20091130
  6. PANALDINE [Concomitant]
     Indication: CEREBRAL INFARCTION
     Dosage: UNK
     Route: 048
  7. ALLOPURINOL [Concomitant]
     Indication: HYPERURICAEMIA
     Dosage: UNK
     Route: 048
  8. BEZATOL [Concomitant]
     Indication: HYPERLIPIDAEMIA
     Dosage: UNK
     Route: 048
  9. FLUITRAN [Concomitant]
     Dosage: UNK
     Route: 048

REACTIONS (5)
  - ALCOHOL INTERACTION [None]
  - ASTHENIA [None]
  - FLUSHING [None]
  - HYPERHIDROSIS [None]
  - SYNCOPE [None]
